FAERS Safety Report 7639863 (Version 3)
Quarter: 2013Q1

REPORT INFORMATION
  Report Type: Spontaneous
  Country: US (occurrence: US)
  Receive Date: 20101026
  Receipt Date: 20130313
  Transmission Date: 20140127
  Serious: Yes (Hospitalization)
  Sender: FDA-Public Use
  Company Number: US-BAYER-201038210NA

PATIENT
  Age: 40 Year
  Sex: Female
  Weight: 78.01 kg

DRUGS (10)
  1. YASMIN [Suspect]
     Dosage: UNK UNK, QD
     Route: 048
     Dates: start: 200308, end: 200408
  2. ZANAFLEX [Concomitant]
     Indication: MULTIPLE SCLEROSIS
  3. VALIUM [Concomitant]
     Indication: MULTIPLE SCLEROSIS
  4. TYSABRI [Concomitant]
     Indication: MULTIPLE SCLEROSIS
  5. OXYBUTYNIN [Concomitant]
     Indication: MULTIPLE SCLEROSIS
  6. MACRODANTIN [Concomitant]
     Indication: MULTIPLE SCLEROSIS
  7. ULTRAM [Concomitant]
     Indication: PAIN
  8. FLUCONAZOLE [Concomitant]
     Indication: FUNGAL INFECTION
  9. MULTIVITAMIN [Concomitant]
     Dosage: UNK, DAILY
  10. CRANBERRY [Concomitant]
     Dosage: UNK, DAILY

REACTIONS (1)
  - Deep vein thrombosis [None]
